FAERS Safety Report 4834100-9 (Version None)
Quarter: 2005Q4

REPORT INFORMATION
  Report Type: 
  Country: None (occurrence: None)
  Receive Date: 20051122
  Receipt Date: 20051116
  Transmission Date: 20060501
  Serious: Yes (Hospitalization)
  Sender: FDA-Public Use
  Company Number: FR-SOLVAY-00205003887

PATIENT
  Age: 16771 Day
  Sex: Male
  Weight: 91 kg

DRUGS (1)
  1. COVERSYL [Suspect]
     Indication: HYPERTENSION
     Dosage: DAILY DOSE: 12 MILLIGRAM(S)
     Route: 048
     Dates: start: 20051025

REACTIONS (1)
  - PNEUMONIA PNEUMOCOCCAL [None]
